APPROVED DRUG PRODUCT: GILDAGIA
Active Ingredient: ETHINYL ESTRADIOL; NORETHINDRONE
Strength: 0.035MG;0.4MG
Dosage Form/Route: TABLET;ORAL-28
Application: A078376 | Product #001 | TE Code: AB
Applicant: PH HEALTH LTD
Approved: Nov 6, 2012 | RLD: No | RS: No | Type: RX